FAERS Safety Report 24270217 (Version 2)
Quarter: 2024Q3

REPORT INFORMATION
  Report Type: Report from Study
  Country: US (occurrence: US)
  Receive Date: 20240830
  Receipt Date: 20240910
  Transmission Date: 20241017
  Serious: Yes (Other)
  Sender: BRISTOL MYERS SQUIBB
  Company Number: US-BRISTOL-MYERS SQUIBB COMPANY-2024-131426

PATIENT
  Age: 77 Year
  Sex: Male

DRUGS (2)
  1. BREYANZI [Suspect]
     Active Substance: LISOCABTAGENE MARALEUCEL
     Indication: Diffuse large B-cell lymphoma recurrent
     Dates: start: 20240716
  2. BREYANZI [Suspect]
     Active Substance: LISOCABTAGENE MARALEUCEL
     Indication: Diffuse large B-cell lymphoma refractory

REACTIONS (17)
  - Neurotoxicity [Unknown]
  - Thrombocytopenia [Unknown]
  - Anaemia [Unknown]
  - Pulmonary embolism [Unknown]
  - Cellulitis [Unknown]
  - Febrile neutropenia [Unknown]
  - Musculoskeletal pain [Unknown]
  - Depression [Unknown]
  - Encephalopathy [Unknown]
  - Bipolar disorder [Unknown]
  - Hypoaesthesia [Unknown]
  - Ventricular extrasystoles [Unknown]
  - Cytomegalovirus viraemia [Unknown]
  - Cytopenia [Unknown]
  - Pneumonia [Unknown]
  - Anger [Unknown]
  - Anxiety [Unknown]

NARRATIVE: CASE EVENT DATE: 20240819
